FAERS Safety Report 11229475 (Version 1)
Quarter: 2015Q2

REPORT INFORMATION
  Report Type: Spontaneous
  Country: US (occurrence: FR)
  Receive Date: 20150630
  Receipt Date: 20150630
  Transmission Date: 20150821
  Serious: Yes (Other)
  Sender: FDA-Public Use
  Company Number: FR-FRI-1000077716

PATIENT
  Age: 76 Year
  Sex: Male

DRUGS (7)
  1. ATARAX [Concomitant]
     Active Substance: HYDROXYZINE\HYDROXYZINE HYDROCHLORIDE
     Dosage: 50 MG
  2. ECONAZOL [Concomitant]
     Route: 061
     Dates: start: 20150514
  3. RAMIPRIL. [Concomitant]
     Active Substance: RAMIPRIL
     Route: 048
     Dates: start: 200907, end: 20150518
  4. LOCAL CORTICOID [Concomitant]
  5. VANCOMYCINE [Suspect]
     Active Substance: VANCOMYCIN
     Route: 042
     Dates: start: 20150502, end: 20150517
  6. CEFTAROLINE FOSAMIL [Suspect]
     Active Substance: CEFTAROLINE FOSAMIL
     Indication: STAPHYLOCOCCAL INFECTION
     Dosage: 1200 MG
     Route: 042
     Dates: start: 20150517, end: 20150520
  7. NOCTAMIDE [Concomitant]
     Active Substance: LORMETAZEPAM
     Dosage: 1 DF

REACTIONS (11)
  - Proteinuria [Unknown]
  - Mycoplasma infection [Unknown]
  - Drug level increased [Unknown]
  - Incorrect drug administration rate [Unknown]
  - Acute kidney injury [Unknown]
  - Incision site inflammation [Unknown]
  - Haematuria [Unknown]
  - Catheter site discharge [Unknown]
  - Dehydration [Unknown]
  - Catheter site inflammation [Unknown]
  - Wound secretion [Unknown]

NARRATIVE: CASE EVENT DATE: 20150512
